FAERS Safety Report 23989700 (Version 1)
Quarter: 2024Q2

REPORT INFORMATION
  Report Type: Report from Study
  Country: ZA (occurrence: ZA)
  Receive Date: 20240619
  Receipt Date: 20240619
  Transmission Date: 20240715
  Serious: Yes (Death, Other)
  Sender: FDA-Public Use
  Company Number: ZA-BAYER-2024A087130

PATIENT
  Sex: Male

DRUGS (1)
  1. EYLEA [Suspect]
     Active Substance: AFLIBERCEPT
     Indication: Macular oedema
     Dosage: 1X VIAL,  SOLUTION FOR INJECTION, 40 MG/ML
     Dates: start: 20240304, end: 20240509

REACTIONS (1)
  - Death [Fatal]

NARRATIVE: CASE EVENT DATE: 20240613
